FAERS Safety Report 13093556 (Version 1)
Quarter: 2017Q1

REPORT INFORMATION
  Report Type: Other
  Country: IT (occurrence: IT)
  Receive Date: 20170106
  Receipt Date: 20170106
  Transmission Date: 20170428
  Serious: Yes (Other)
  Sender: FDA-Public Use
  Company Number: IT-CELLTRION INC.-2016IT014316

PATIENT

DRUGS (12)
  1. REMSIMA [Suspect]
     Active Substance: INFLIXIMAB
     Indication: RHEUMATOID ARTHRITIS
     Dosage: 300 MG, CYCLIC
     Route: 042
     Dates: start: 20160407, end: 20160407
  2. LEVOTIROXINE EG [Concomitant]
     Indication: POST PROCEDURAL HYPOTHYROIDISM
     Dosage: LEVOTIROXINE EG 50 MG TABLETS 28 TABLETS IN PVC/PVDC/AL BLISTER
     Route: 048
  3. REUMAFLEX                          /00113802/ [Concomitant]
     Active Substance: METHOTREXATE SODIUM
     Indication: RHEUMATOID ARTHRITIS
     Dosage: REUMAFLEX 50 MG/ML INJECTABLE SOLUTION, PREFILLED SYRINGES, 1 SYRINGE OF 0.20 ML WITH FIXED SUBCUTAN
     Route: 030
  4. DELTACORTENE [Concomitant]
     Active Substance: PREDNISONE
     Indication: RHEUMATOID ARTHRITIS
     Dosage: 5 MG TABLETS, 10 TABLETS
     Route: 048
  5. DIBASE [Concomitant]
     Active Substance: CHOLECALCIFEROL
     Indication: VITAMIN D DEFICIENCY
     Dosage: DIBASE 10.000 IU/ML ORAL DROPS, SOLUTION, 10 ML DROPPER FLASK, 25 ORAL DROPS, SOLUTION
     Route: 048
  6. CARBOLITHIUM [Concomitant]
     Active Substance: LITHIUM CARBONATE
     Indication: BIPOLAR DISORDER
     Dosage: CARBOLITHIUM 300 MG RIGID CAPSULES, 50 CAPSULES
     Route: 048
  7. FOLIDAR [Concomitant]
     Indication: THALASSAEMIA
     Dosage: FOLIDAR 15 MG TABLETS, 30 TABLETS
     Route: 048
  8. VALDORM                            /00246102/ [Concomitant]
     Active Substance: FLURAZEPAM HYDROCHLORIDE
     Indication: BIPOLAR DISORDER
     Dosage: VALDORM 30 MG CAPSULES, 30 CAPSULES
     Route: 048
  9. OMEPRAZOLE. [Concomitant]
     Active Substance: OMEPRAZOLE
     Indication: PROPHYLAXIS
     Dosage: 20 MG, UNK
     Route: 048
  10. SODIUM CLODRONATE [Concomitant]
     Active Substance: CLODRONIC ACID
     Indication: OSTEOPETROSIS
     Dosage: 100 MG, UNK
     Route: 030
  11. LORAZEPAM. [Concomitant]
     Active Substance: LORAZEPAM
     Indication: BIPOLAR DISORDER
     Dosage: 40 DROPS
     Route: 048
  12. QUETIAPINE. [Concomitant]
     Active Substance: QUETIAPINE
     Indication: BIPOLAR DISORDER
     Dosage: 300 MG, UNK
     Route: 048

REACTIONS (3)
  - Joint swelling [Recovering/Resolving]
  - Arthralgia [Recovering/Resolving]
  - Paradoxical drug reaction [Recovering/Resolving]

NARRATIVE: CASE EVENT DATE: 20160407
